FAERS Safety Report 24910939 (Version 1)
Quarter: 2025Q1

REPORT INFORMATION
  Report Type: Other
  Country: AT (occurrence: AT)
  Receive Date: 20250131
  Receipt Date: 20250131
  Transmission Date: 20250408
  Serious: Yes (Other)
  Sender: Kanchan Healthcare
  Company Number: AT-Kanchan Healthcare INC-2170200

PATIENT
  Age: 63 Year
  Sex: Female

DRUGS (10)
  1. DEXAMETHASONE [Suspect]
     Active Substance: DEXAMETHASONE
     Indication: Anaplastic large cell lymphoma T- and null-cell types
  2. CYCLOPHOSPHAMIDE [Suspect]
     Active Substance: CYCLOPHOSPHAMIDE
  3. MELPHALAN [Suspect]
     Active Substance: MELPHALAN
  4. ETOPOSIDE [Suspect]
     Active Substance: ETOPOSIDE
  5. BENDAMUSTINE HYDROCHLORIDE [Suspect]
     Active Substance: BENDAMUSTINE HYDROCHLORIDE
  6. CISPLATIN [Suspect]
     Active Substance: CISPLATIN
  7. CYTARABINE [Suspect]
     Active Substance: CYTARABINE
  8. PREDNISOLONE [Suspect]
     Active Substance: PREDNISOLONE
  9. DOXORUBICIN HYDROCHLORIDE [Suspect]
     Active Substance: DOXORUBICIN HYDROCHLORIDE
  10. BRENTUXIMAB VEDOTIN [Suspect]
     Active Substance: BRENTUXIMAB VEDOTIN

REACTIONS (2)
  - Immune-mediated enterocolitis [Unknown]
  - Product use in unapproved indication [Unknown]
